FAERS Safety Report 23921800 (Version 1)
Quarter: 2024Q2

REPORT INFORMATION
  Report Type: Spontaneous
  Country: US (occurrence: US)
  Receive Date: 20240530
  Receipt Date: 20240530
  Transmission Date: 20240716
  Serious: No
  Sender: FDA-Public Use
  Company Number: US-BAUSCHBL-2024BNL027524

PATIENT
  Age: 3 Month
  Sex: Male

DRUGS (1)
  1. ERYTHROMYCIN [Suspect]
     Active Substance: ERYTHROMYCIN
     Indication: Conjunctivitis
     Dosage: 1 APPLICATION INTO THE LOWER EYELID OF AFFECTED EYE (FOR BOTH EYES)
     Route: 047
     Dates: start: 20240522

REACTIONS (3)
  - Eye swelling [Unknown]
  - Discomfort [Unknown]
  - Ocular hyperaemia [Unknown]

NARRATIVE: CASE EVENT DATE: 20240501
